FAERS Safety Report 9287822 (Version 1)
Quarter: 2013Q2

REPORT INFORMATION
  Report Type: Report from Study
  Country: US (occurrence: US)
  Receive Date: 20130514
  Receipt Date: 20130514
  Transmission Date: 20140414
  Serious: Yes (Hospitalization, Other)
  Sender: FDA-Public Use
  Company Number: US-PURDUE-USA-2013-0101927

PATIENT
  Age: 40 Year
  Sex: Female

DRUGS (2)
  1. OXYCONTIN (NDA 22-272) [Suspect]
     Indication: PRODUCT USED FOR UNKNOWN INDICATION
     Dosage: 20 MG, BID
     Route: 048
  2. BACLOFEN [Suspect]
     Indication: PRODUCT USED FOR UNKNOWN INDICATION

REACTIONS (6)
  - Incorrect dose administered [Unknown]
  - Facial bones fracture [Unknown]
  - Joint injury [Unknown]
  - Convulsion [Recovered/Resolved]
  - Confusional state [Recovered/Resolved]
  - Thinking abnormal [Recovered/Resolved]
